FAERS Safety Report 25790885 (Version 1)
Quarter: 2025Q3

REPORT INFORMATION
  Report Type: Other
  Country: KR (occurrence: KR)
  Receive Date: 20250911
  Receipt Date: 20250911
  Transmission Date: 20251020
  Serious: Yes (Death)
  Sender: APPCO PHARMA LLC
  Company Number: KR-Appco Pharma LLC-2184281

PATIENT
  Age: 40 Year
  Sex: Male
  Weight: 64 kg

DRUGS (8)
  1. SERTRALINE [Suspect]
     Active Substance: SERTRALINE HYDROCHLORIDE
     Indication: Product used for unknown indication
  2. QUETIAPINE [Suspect]
     Active Substance: QUETIAPINE
  3. ALCOHOL [Suspect]
     Active Substance: ALCOHOL
  4. PALIPERIDONE [Suspect]
     Active Substance: PALIPERIDONE
  5. LORAZEPAM [Suspect]
     Active Substance: LORAZEPAM
  6. VALPROIC ACID [Suspect]
     Active Substance: VALPROIC ACID
  7. LITHIUM [Suspect]
     Active Substance: LITHIUM
  8. DIAZEPAM [Suspect]
     Active Substance: DIAZEPAM

REACTIONS (1)
  - Toxicity to various agents [Fatal]
